FAERS Safety Report 9768248 (Version 3)
Quarter: 2014Q1

REPORT INFORMATION
  Report Type: Spontaneous
  Country: US (occurrence: US)
  Receive Date: 20131217
  Receipt Date: 20140312
  Transmission Date: 20141002
  Serious: Yes (Other)
  Sender: FDA-Public Use
  Company Number: US-PFIZER INC-2013359881

PATIENT
  Sex: Male

DRUGS (4)
  1. ZOLOFT [Suspect]
     Dosage: UNK
     Dates: start: 2002
  2. NEURONTIN [Suspect]
     Dosage: UNK
  3. VIAGRA [Suspect]
     Dosage: UNK
  4. LYRICA [Suspect]
     Dosage: UNK

REACTIONS (1)
  - Neoplasm malignant [Unknown]
